FAERS Safety Report 4352492-4 (Version None)
Quarter: 2004Q2

REPORT INFORMATION
  Report Type: 
  Country: None (occurrence: None)
  Receive Date: 20040503
  Receipt Date: 20040503
  Transmission Date: 20050107
  Serious: Yes (Death)
  Sender: FDA-Public Use
  Company Number: None

PATIENT
  Age: 75 Year
  Sex: Male

DRUGS (7)
  1. HEPARIN [Suspect]
     Indication: INTRAOPERATIVE CARE
     Dosage: HEPARIN BOLUS
     Route: 040
     Dates: start: 20040324
  2. FORTAZ [Concomitant]
  3. PANTOPRAZOLE [Concomitant]
  4. DIGOXIN [Concomitant]
  5. PROPOFOL [Concomitant]
  6. DILTIAZEM [Concomitant]
  7. METOPROPOL [Concomitant]

REACTIONS (11)
  - ACTIVATED PARTIAL THROMBOPLASTIN TIME PROLONGED [None]
  - ATRIAL FIBRILLATION [None]
  - CEREBROVASCULAR ACCIDENT [None]
  - DISSEMINATED INTRAVASCULAR COAGULATION [None]
  - GASTROINTESTINAL HAEMORRHAGE [None]
  - HEPARIN-INDUCED THROMBOCYTOPENIA [None]
  - LOSS OF CONSCIOUSNESS [None]
  - PERIPHERAL ISCHAEMIA [None]
  - PLATELET COUNT DECREASED [None]
  - PROCEDURAL COMPLICATION [None]
  - PROTHROMBIN TIME PROLONGED [None]
